FAERS Safety Report 19264707 (Version 1)
Quarter: 2021Q2

REPORT INFORMATION
  Report Type: Spontaneous
  Country: US (occurrence: US)
  Receive Date: 20210517
  Receipt Date: 20210517
  Transmission Date: 20210717
  Serious: No
  Sender: FDA-Public Use
  Company Number: None

PATIENT
  Age: 51 Year
  Sex: Female
  Weight: 59.4 kg

DRUGS (9)
  1. CELLCEPT [Concomitant]
     Active Substance: MYCOPHENOLATE MOFETIL\MYCOPHENOLATE MOFETIL HYDROCHLORIDE
  2. BIOTIN [Concomitant]
     Active Substance: BIOTIN
  3. XIIDRA [Suspect]
     Active Substance: LIFITEGRAST
     Indication: SJOGREN^S SYNDROME
     Dosage: ?          QUANTITY:1 DROP(S);?
     Route: 047
     Dates: start: 20210401, end: 20210415
  4. MOBIC [Concomitant]
     Active Substance: MELOXICAM
  5. CLOBETASOL CREAM [Concomitant]
     Active Substance: CLOBETASOL
  6. HYDROXYCHLORIQUINE [Concomitant]
     Active Substance: HYDROXYCHLOROQUINE
  7. LEFLUNOMIDE. [Concomitant]
     Active Substance: LEFLUNOMIDE
  8. ESTRACE [Concomitant]
     Active Substance: ESTRADIOL
  9. PILOCARPINE HCL [Concomitant]
     Active Substance: PILOCARPINE HYDROCHLORIDE

REACTIONS (7)
  - Instillation site discharge [None]
  - Eye pain [None]
  - Vision blurred [None]
  - Instillation site pain [None]
  - Instillation site erythema [None]
  - Eye swelling [None]
  - Madarosis [None]

NARRATIVE: CASE EVENT DATE: 20210422
